FAERS Safety Report 5031314-2 (Version None)
Quarter: 2006Q2

REPORT INFORMATION
  Report Type: 
  Country: None (occurrence: None)
  Receive Date: 20060615
  Receipt Date: 20060605
  Transmission Date: 20061013
  Serious: Yes (Hospitalization)
  Sender: FDA-Public Use
  Company Number: 2006-BP-06408RO

PATIENT
  Age: 26 Year
  Sex: Male

DRUGS (1)
  1. LITHIUM CARBONATE [Suspect]
     Indication: BIPOLAR DISORDER

REACTIONS (6)
  - ABDOMINAL PAIN [None]
  - DEHYDRATION [None]
  - DIABETES MELLITUS [None]
  - DIABETIC KETOACIDOSIS [None]
  - HYPOGLYCAEMIA [None]
  - TREMOR [None]
